FAERS Safety Report 8101127-3 (Version None)
Quarter: 2012Q1

REPORT INFORMATION
  Report Type: 
  Country: None (occurrence: None)
  Receive Date: 20120129
  Receipt Date: 20110919
  Transmission Date: 20120608
  Serious: No
  Sender: FDA-Public Use
  Company Number: US-ABBOTT-11P-163-0856081-00

PATIENT
  Sex: Female

DRUGS (3)
  1. DULCOLAX [Concomitant]
     Indication: PRODUCT USED FOR UNKNOWN INDICATION
  2. HUMIRA [Suspect]
     Dates: start: 20110801
  3. HUMIRA [Suspect]
     Indication: PSORIATIC ARTHROPATHY
     Dates: start: 20100902, end: 20110501

REACTIONS (5)
  - PAIN [None]
  - PRURITUS [None]
  - OEDEMA PERIPHERAL [None]
  - PSORIATIC ARTHROPATHY [None]
  - LOCAL SWELLING [None]
